FAERS Safety Report 5378568-0 (Version None)
Quarter: 2007Q3

REPORT INFORMATION
  Report Type: 
  Country: None (occurrence: None)
  Receive Date: 20070702
  Receipt Date: 20070702
  Transmission Date: 20080115
  Serious: Yes (Other)
  Sender: FDA-Public Use
  Company Number: None

PATIENT
  Sex: Female
  Weight: 61.2356 kg

DRUGS (2)
  1. LEVAQUIN [Suspect]
     Indication: LYMPHADENOPATHY
     Dosage: 500 MG ONCE A DAY X 10  PO
     Route: 048
     Dates: start: 20070625, end: 20070701
  2. LEVAQUIN [Suspect]
     Indication: PHARYNGOLARYNGEAL PAIN
     Dosage: 500 MG ONCE A DAY X 10  PO
     Route: 048
     Dates: start: 20070625, end: 20070701

REACTIONS (5)
  - ARTHRALGIA [None]
  - ASTHENIA [None]
  - DIZZINESS [None]
  - INSOMNIA [None]
  - RESTLESSNESS [None]
